FAERS Safety Report 6149097-1 (Version None)
Quarter: 2009Q2

REPORT INFORMATION
  Report Type: 
  Country: None (occurrence: None)
  Receive Date: 20090409
  Receipt Date: 20090330
  Transmission Date: 20091009
  Serious: Yes (Other)
  Sender: FDA-Public Use
  Company Number: PHNU2008DE00969

PATIENT
  Sex: Female

DRUGS (4)
  1. SANDIMMUNE [Suspect]
     Indication: MYASTHENIA GRAVIS
     Dosage: 150 MG/DAY
     Dates: start: 19960101
  2. MESTINON [Concomitant]
     Dosage: 1 DF, BID
     Dates: start: 19960101
  3. ESTRAMON [Concomitant]
  4. NOVAMINSULFON [Concomitant]

REACTIONS (4)
  - PORTAL VEIN OCCLUSION [None]
  - PORTAL VEIN THROMBOSIS [None]
  - SPLENOMEGALY [None]
  - THROMBOCYTOPENIA [None]
